FAERS Safety Report 10952136 (Version 1)
Quarter: 2015Q1

REPORT INFORMATION
  Report Type: Spontaneous
  Country: US (occurrence: None)
  Receive Date: 20150324
  Receipt Date: 20150324
  Transmission Date: 20150721
  Serious: Yes (Hospitalization, Other)
  Sender: FDA-Public Use
  Company Number: None

PATIENT
  Age: 52 Year
  Sex: Female
  Weight: 63.5 kg

DRUGS (7)
  1. VENLAFAXINE [Concomitant]
     Active Substance: VENLAFAXINE HYDROCHLORIDE
  2. TEMAZEPAM. [Concomitant]
     Active Substance: TEMAZEPAM
  3. BENZTROPINE [Concomitant]
     Active Substance: BENZTROPINE
  4. LATUDA [Suspect]
     Active Substance: LURASIDONE HYDROCHLORIDE
     Indication: BIPOLAR DISORDER
     Dosage: 7 SINGLE DOSDE SAMPLE PACK, BY MOUTH
     Dates: start: 20140227, end: 20140307
  5. LORAZEPAM. [Concomitant]
     Active Substance: LORAZEPAM
  6. MELATONIN [Concomitant]
     Active Substance: MELATONIN
  7. LATUDA [Concomitant]
     Active Substance: LURASIDONE HYDROCHLORIDE

REACTIONS (5)
  - Vitreous floaters [None]
  - Photopsia [None]
  - Hypersensitivity [None]
  - Cataract [None]
  - Retinal detachment [None]

NARRATIVE: CASE EVENT DATE: 20140307
